FAERS Safety Report 5850079-5 (Version None)
Quarter: 2008Q3

REPORT INFORMATION
  Report Type: 
  Country: None (occurrence: None)
  Receive Date: 20080819
  Receipt Date: 20080814
  Transmission Date: 20090109
  Serious: Yes (Life-Threatening, Hospitalization)
  Sender: FDA-Public Use
  Company Number: DE-AVENTIS-200811833DE

PATIENT
  Age: 58 Year
  Sex: Female
  Weight: 94 kg

DRUGS (3)
  1. ARAVA [Suspect]
     Route: 048
     Dates: start: 20080519
  2. HYDROMORPHONE HCL [Suspect]
     Indication: RHEUMATOID ARTHRITIS
     Route: 048
     Dates: start: 20080407, end: 20080519
  3. FALITHROM [Suspect]
     Dosage: DOSE: NOT REPORTED
     Route: 048

REACTIONS (3)
  - CARDIAC DISORDER [None]
  - DYSPNOEA [None]
  - PULMONARY EMBOLISM [None]
